FAERS Safety Report 16651718 (Version 2)
Quarter: 2019Q3

REPORT INFORMATION
  Report Type: Report from Study
  Country: GB (occurrence: GB)
  Receive Date: 20190731
  Receipt Date: 20190828
  Transmission Date: 20191004
  Serious: Yes (Other)
  Sender: FDA-Public Use
  Company Number: GB-EMD SERONO-9033458

PATIENT
  Age: 28 Year
  Sex: Female

DRUGS (4)
  1. MAVENCLAD [Suspect]
     Active Substance: CLADRIBINE
     Indication: MULTIPLE SCLEROSIS
     Dosage: TWO TABLETS (EACH OF 10MG) ON DAYS 1 TO 4 AND ONE TABLET ON DAY 5 IN THE FIRST YEAR FIRST WEEK OF TR
     Route: 048
     Dates: start: 20180625
  2. MAVENCLAD [Suspect]
     Active Substance: CLADRIBINE
     Dosage: FIRST YEAR SECOND WEEK THERAPY: 2 TABLETS (EACH OF 10MG) ON DAYS 1 TO 3 AND 1 TABLET ON DAYS 4 AND 5
     Route: 048
     Dates: start: 20180724
  3. IBUPROFEN. [Concomitant]
     Active Substance: IBUPROFEN
     Indication: PRODUCT USED FOR UNKNOWN INDICATION
  4. MAVENCLAD [Suspect]
     Active Substance: CLADRIBINE
     Dosage: SECOND YEAR FIRST WEEK THERAPY: TWO TABLETS (10 MG EACH) ON DAYS 1 TO 5
     Route: 048
     Dates: start: 20190807

REACTIONS (20)
  - Pharyngitis [Not Recovered/Not Resolved]
  - Taste disorder [Not Recovered/Not Resolved]
  - Pruritus [Unknown]
  - Balance disorder [Unknown]
  - Nasopharyngitis [Not Recovered/Not Resolved]
  - Paraesthesia [Unknown]
  - Product physical issue [Unknown]
  - Poor quality product administered [Unknown]
  - Oral discomfort [Recovered/Resolved]
  - Burning sensation [Unknown]
  - Coordination abnormal [Unknown]
  - Lower respiratory tract infection [Unknown]
  - Emotional disorder [Not Recovered/Not Resolved]
  - Fatigue [Unknown]
  - Cardiac flutter [Recovered/Resolved]
  - Feeling jittery [Recovered/Resolved]
  - Malaise [Unknown]
  - Nausea [Not Recovered/Not Resolved]
  - Pyrexia [Recovered/Resolved]
  - Lymphocyte count decreased [Not Recovered/Not Resolved]

NARRATIVE: CASE EVENT DATE: 201806
